FAERS Safety Report 4821855-2 (Version None)
Quarter: 2005Q4

REPORT INFORMATION
  Report Type: 
  Country: None (occurrence: None)
  Receive Date: 20051107
  Receipt Date: 20050207
  Transmission Date: 20060501
  Serious: Yes (Other)
  Sender: FDA-Public Use
  Company Number: PHEH2005US01784

PATIENT
  Age: 72 Year
  Sex: Female

DRUGS (5)
  1. AREDIA [Suspect]
     Indication: METASTASES TO BONE
  2. ZOMETA [Suspect]
     Indication: METASTASES TO BONE
  3. TRASTUZUMAB [Concomitant]
  4. VINORELBINE [Concomitant]
  5. PACLITAXEL [Concomitant]

REACTIONS (7)
  - DENTAL CARIES [None]
  - ENDODONTIC PROCEDURE [None]
  - IMPAIRED HEALING [None]
  - INFECTION [None]
  - OSTEONECROSIS [None]
  - SEQUESTRECTOMY [None]
  - TOOTH EXTRACTION [None]
